FAERS Safety Report 8620637-3 (Version None)
Quarter: 2012Q3

REPORT INFORMATION
  Report Type: 
  Country: None (occurrence: None)
  Receive Date: 20120824
  Receipt Date: 20120815
  Transmission Date: 20120928
  Serious: Yes (Hospitalization, Disabling, Other)
  Sender: FDA-Public Use
  Company Number: US-009507513-1206USA04639

PATIENT

DRUGS (2)
  1. FOSAMAX [Suspect]
     Indication: OSTEOPOROSIS
     Dosage: 35 MG, QW
     Route: 048
  2. FOSAMAX [Suspect]
     Indication: OSTEOPENIA

REACTIONS (25)
  - OSTEOPOROSIS [None]
  - AORTIC VALVE REPLACEMENT [None]
  - ATRIAL FIBRILLATION [None]
  - STRESS FRACTURE [None]
  - OPEN REDUCTION OF FRACTURE [None]
  - RIB FRACTURE [None]
  - DEPRESSION [None]
  - GASTROOESOPHAGEAL REFLUX DISEASE [None]
  - FEMUR FRACTURE [None]
  - FOOT OPERATION [None]
  - HYPOTHYROIDISM [None]
  - ARTHRITIS [None]
  - URINARY TRACT INFECTION [None]
  - PAIN [None]
  - PAIN IN EXTREMITY [None]
  - CARPAL TUNNEL DECOMPRESSION [None]
  - CHOLECYSTECTOMY [None]
  - INTERNAL FIXATION OF FRACTURE [None]
  - LOW TURNOVER OSTEOPATHY [None]
  - FALL [None]
  - CONTUSION [None]
  - HYPERTENSION [None]
  - CARDIAC PACEMAKER INSERTION [None]
  - MITRAL VALVE PROLAPSE [None]
  - HYSTERECTOMY [None]
